FAERS Safety Report 9002925 (Version 1)
Quarter: 2012Q4

REPORT INFORMATION
  Report Type: Spontaneous
  Country: IL (occurrence: None)
  Receive Date: 20121226
  Receipt Date: 20121226
  Transmission Date: 20130627
  Serious: Yes (Hospitalization)
  Sender: FDA-Public Use
  Company Number: AXC-2012-000587

PATIENT
  Age: 55 Year
  Sex: Male

DRUGS (2)
  1. NITROGLYCERIN (NITROGLYCERIN) RECTAL OINTMENT [Suspect]
     Indication: PERIANAL ABSCESS
     Dosage: 1 DF, qd, Topical
     Route: 061
     Dates: start: 20121123, end: 20121126
  2. NITROGLYCERIN (NITROGLYCERIN) RECTAL OINTMENT [Suspect]
     Indication: ANAL FISSURE
     Dosage: 1 DF, qd, Topical
     Route: 061
     Dates: start: 20121123, end: 20121126

REACTIONS (5)
  - Anal abscess [None]
  - Dizziness [None]
  - Blood pressure decreased [None]
  - Headache [None]
  - Drug ineffective [None]
